FAERS Safety Report 14744907 (Version 5)
Quarter: 2018Q2

REPORT INFORMATION
  Report Type: Spontaneous
  Country: MY (occurrence: MY)
  Receive Date: 20180411
  Receipt Date: 20180531
  Transmission Date: 20180711
  Serious: Yes (Hospitalization, Other)
  Sender: FDA-Public Use
  Company Number: MY-CONCORDIA PHARMACEUTICALS INC.-E2B_00010971

PATIENT
  Age: 32 Year
  Sex: Female

DRUGS (15)
  1. PREDNISOLONE. [Suspect]
     Active Substance: PREDNISOLONE
     Indication: SYSTEMIC LUPUS ERYTHEMATOSUS
     Route: 048
     Dates: start: 20160412, end: 20161215
  2. PREDNISOLONE. [Suspect]
     Active Substance: PREDNISOLONE
     Route: 048
  3. HYDROXYCHLOROQUINE [Concomitant]
     Active Substance: HYDROXYCHLOROQUINE
     Indication: SYSTEMIC LUPUS ERYTHEMATOSUS
     Route: 065
  4. MEROPENEM. [Suspect]
     Active Substance: MEROPENEM
     Indication: BACTERAEMIA
     Route: 042
  5. CLARITHROMYCIN. [Suspect]
     Active Substance: CLARITHROMYCIN
     Indication: MYCOBACTERIUM ABSCESSUS INFECTION
  6. TAZOCIN (PIPERACILLIN AND TAZOBACTAM) [Suspect]
     Active Substance: PIPERACILLIN SODIUM\TAZOBACTAM SODIUM
     Route: 042
  7. CARDIPRIN [Concomitant]
  8. CIPROFLOXACIN SALT [Suspect]
     Active Substance: CIPROFLOXACIN
     Indication: BACTERAEMIA
  9. METHYLPREDNISOLONE. [Suspect]
     Active Substance: METHYLPREDNISOLONE
     Indication: SYSTEMIC LUPUS ERYTHEMATOSUS
     Route: 065
     Dates: start: 20160504, end: 20160506
  10. CLARITHROMYCIN. [Suspect]
     Active Substance: CLARITHROMYCIN
     Indication: BACTERAEMIA
     Route: 048
  11. PREDNISOLONE. [Suspect]
     Active Substance: PREDNISOLONE
     Route: 048
     Dates: start: 20161215
  12. TINZAPARIN [Concomitant]
     Active Substance: TINZAPARIN
     Route: 058
  13. CIPROFLOXACIN SALT [Suspect]
     Active Substance: CIPROFLOXACIN
     Indication: MYCOBACTERIUM ABSCESSUS INFECTION
     Route: 065
  14. MEROPENEM. [Suspect]
     Active Substance: MEROPENEM
     Indication: MYCOBACTERIUM ABSCESSUS INFECTION
  15. METHYLPREDNISOLONE. [Suspect]
     Active Substance: METHYLPREDNISOLONE
     Route: 042

REACTIONS (29)
  - Maternal exposure during pregnancy [None]
  - Lupus nephritis [None]
  - Pneumonia [None]
  - Autoimmune haemolytic anaemia [Recovering/Resolving]
  - Myositis [Unknown]
  - Blood creatine phosphokinase increased [Unknown]
  - C-reactive protein increased [Unknown]
  - Tachypnoea [Unknown]
  - Lethargy [Unknown]
  - Pyrexia [Unknown]
  - Urine protein/creatinine ratio increased [Unknown]
  - Arthritis [None]
  - Premature delivery [None]
  - Urinary tract infection [Unknown]
  - Pregnancy [None]
  - Caesarean section [None]
  - Exposure during pregnancy [Unknown]
  - Systemic lupus erythematosus [Recovering/Resolving]
  - Respiratory failure [Recovering/Resolving]
  - Drug ineffective [Unknown]
  - Tachycardia [Unknown]
  - Red blood cell sedimentation rate increased [Unknown]
  - Mycobacterium abscessus infection [Unknown]
  - Bacteraemia [Recovering/Resolving]
  - Mouth ulceration [Unknown]
  - Disease recurrence [None]
  - Condition aggravated [Unknown]
  - Myopathy [Unknown]
  - Haemoptysis [Unknown]

NARRATIVE: CASE EVENT DATE: 2016
